FAERS Safety Report 18283727 (Version 1)
Quarter: 2020Q3

REPORT INFORMATION
  Report Type: Report from Study
  Country: US (occurrence: US)
  Receive Date: 20200918
  Receipt Date: 20200918
  Transmission Date: 20201103
  Serious: Yes (Life-Threatening, Hospitalization)
  Sender: FDA-Public Use
  Company Number: US-TEVA-2020-US-1827413

PATIENT
  Age: 87 Year
  Sex: Male

DRUGS (4)
  1. NOREPINEPHRINE. [Suspect]
     Active Substance: NOREPINEPHRINE
     Indication: SHOCK
     Dosage: 0 TO 1.5 MICROG/KG/MIN
     Route: 065
  2. METFORMIN [Suspect]
     Active Substance: METFORMIN HYDROCHLORIDE
     Indication: PRODUCT USED FOR UNKNOWN INDICATION
     Dosage: 2000 MILLIGRAM DAILY;
     Route: 065
  3. VASOPRESSIN. [Suspect]
     Active Substance: VASOPRESSIN
     Indication: SHOCK
     Dosage: 0 TO 0.04 UNITS/MIN
     Route: 065
  4. EPINEPHRINE. [Suspect]
     Active Substance: EPINEPHRINE
     Indication: SHOCK
     Dosage: 0 TO 1.5 MICROG/KG/MIN
     Route: 065

REACTIONS (5)
  - Shock [Unknown]
  - Toxicity to various agents [Recovering/Resolving]
  - Respiratory failure [Unknown]
  - Lactic acidosis [Recovering/Resolving]
  - Drug ineffective [Unknown]
